FAERS Safety Report 6959331-3 (Version None)
Quarter: 2010Q3

REPORT INFORMATION
  Report Type: 
  Country: None (occurrence: None)
  Receive Date: 20100831
  Receipt Date: 20100824
  Transmission Date: 20110219
  Serious: Yes (Hospitalization)
  Sender: FDA-Public Use
  Company Number: PHHO2010DE12896

PATIENT
  Sex: Female

DRUGS (4)
  1. SANDIMMUNE [Suspect]
     Indication: RENAL TRANSPLANT
     Dosage: UNK
     Route: 048
     Dates: end: 20090425
  2. MYFORTIC [Suspect]
     Indication: RENAL TRANSPLANT
     Route: 048
  3. NO TREATMENT RECEIVED NOMED [Suspect]
     Indication: RENAL TRANSPLANT
     Dosage: NO TREATMENT
  4. PREDNISONE TAB [Suspect]
     Indication: RENAL TRANSPLANT
     Route: 048

REACTIONS (3)
  - BLOOD CREATININE INCREASED [None]
  - SECRETION DISCHARGE [None]
  - SEROMA [None]
